FAERS Safety Report 7965510-9 (Version None)
Quarter: 2011Q4

REPORT INFORMATION
  Report Type: 
  Country: None (occurrence: None)
  Receive Date: 20111208
  Receipt Date: 20111205
  Transmission Date: 20120403
  Serious: Yes (Death, Life-Threatening, Hospitalization)
  Sender: FDA-Public Use
  Company Number: US-BAYER-2011-112728

PATIENT
  Sex: Female
  Weight: 76.5 kg

DRUGS (18)
  1. SARGRAMOSTIM [Suspect]
     Dosage: 250 ?G, QD
     Route: 058
     Dates: start: 20110805, end: 20110818
  2. FONDAPARINUX SODIUM [Concomitant]
     Dosage: 2.5 MG, QD
  3. SARGRAMOSTIM [Suspect]
     Dosage: 250 ?G, QD
     Route: 058
     Dates: start: 20111028, end: 20111110
  4. EFFEXOR [Concomitant]
     Indication: MAJOR DEPRESSION
     Dosage: 75 MG, QD
  5. SARGRAMOSTIM [Suspect]
     Indication: MALIGNANT MELANOMA
     Dosage: 250 ?G, QD
     Route: 058
     Dates: start: 20111118, end: 20111120
  6. SARGRAMOSTIM [Suspect]
     Dosage: 250 ?G, QD
     Route: 058
     Dates: start: 20110826, end: 20110908
  7. SARGRAMOSTIM [Suspect]
     Dosage: 250 ?G, QD
     Route: 058
     Dates: start: 20110624, end: 20110707
  8. MDX-010 [Suspect]
     Dosage: 10 MG/KG, DAY 1 OF CYCLE 2
     Route: 042
     Dates: start: 20110715, end: 20110715
  9. MDX-010 [Suspect]
     Dosage: 10 MG/KG, DAY 1 OF CYCLE 3
     Route: 042
     Dates: start: 20110805, end: 20110805
  10. MDX-010 [Suspect]
     Dosage: 10 MG/KG, DAY 1 OF CYCLE 4
     Route: 042
     Dates: start: 20110826, end: 20110826
  11. MDX-010 [Suspect]
     Dosage: 10 MG/KG, DAY 1 OF CYCLE 5
     Route: 042
     Dates: start: 20110916, end: 20110916
  12. SARGRAMOSTIM [Suspect]
     Dosage: 250 ?G, QD
     Route: 058
     Dates: start: 20110916, end: 20110929
  13. MDX-010 [Suspect]
     Indication: MALIGNANT MELANOMA
     Dosage: 758 MG, DAY 1 OF CYCLE 8
     Route: 042
     Dates: start: 20111118, end: 20111118
  14. MDX-010 [Suspect]
     Dosage: 10 MG/KG, DAY 1 OF CYCLE 1
     Route: 042
     Dates: start: 20110624, end: 20110624
  15. SARGRAMOSTIM [Suspect]
     Dosage: 250 ?G, QD
     Route: 058
     Dates: start: 20111007, end: 20111020
  16. SARGRAMOSTIM [Suspect]
     Dosage: 250 ?G, QD
     Route: 058
     Dates: start: 20110715, end: 20110728
  17. SYNTHROID [Concomitant]
     Dosage: 150 MG, QD
  18. ACETAMINOPHEN [Concomitant]
     Indication: PAIN
     Dosage: UNK UNK, PRN

REACTIONS (6)
  - OROPHARYNGEAL PAIN [None]
  - ADRENAL INSUFFICIENCY [None]
  - PYREXIA [None]
  - SEPSIS [None]
  - COUGH [None]
  - CARDIAC ARREST [None]
